FAERS Safety Report 8171204-X (Version None)
Quarter: 2012Q1

REPORT INFORMATION
  Report Type: 
  Country: None (occurrence: None)
  Receive Date: 20120228
  Receipt Date: 20120105
  Transmission Date: 20120608
  Serious: No
  Sender: FDA-Public Use
  Company Number: US-BRISTOL-MYERS SQUIBB COMPANY-16333155

PATIENT

DRUGS (1)
  1. ONGLYZA [Suspect]
     Dosage: 2.5 MG

REACTIONS (1)
  - CREATININE RENAL CLEARANCE DECREASED [None]
